FAERS Safety Report 7629480-5 (Version None)
Quarter: 2011Q3

REPORT INFORMATION
  Report Type: 
  Country: None (occurrence: None)
  Receive Date: 20110722
  Receipt Date: 20110718
  Transmission Date: 20111222
  Serious: Yes (Hospitalization)
  Sender: FDA-Public Use
  Company Number: US-BAYER-2011-016261

PATIENT
  Age: 25 Year
  Sex: Female
  Weight: 58 kg

DRUGS (2)
  1. YASMIN [Suspect]
     Indication: ORAL CONTRACEPTION
     Dosage: UNK UNK, QD
     Route: 048
     Dates: start: 20070101, end: 20080101
  2. YAZ [Suspect]
     Indication: ORAL CONTRACEPTION
     Dosage: UNK, QD
     Route: 048
     Dates: start: 20070101, end: 20080301

REACTIONS (9)
  - DEEP VEIN THROMBOSIS [None]
  - LIMB INJURY [None]
  - FEAR OF DEATH [None]
  - INJURY [None]
  - DEPRESSION [None]
  - PAIN [None]
  - EMOTIONAL DISTRESS [None]
  - NERVOUSNESS [None]
  - OEDEMA PERIPHERAL [None]
